FAERS Safety Report 6153430-4 (Version None)
Quarter: 2009Q2

REPORT INFORMATION
  Report Type: 
  Country: None (occurrence: None)
  Receive Date: 20090409
  Receipt Date: 20090409
  Transmission Date: 20091009
  Serious: Yes (Hospitalization)
  Sender: FDA-Public Use
  Company Number: None

PATIENT
  Age: 41 Year
  Sex: Female
  Weight: 72.5755 kg

DRUGS (1)
  1. ALEVE [Suspect]

REACTIONS (7)
  - ERYTHEMA [None]
  - LIP SWELLING [None]
  - OROPHARYNGEAL BLISTERING [None]
  - PRURITUS [None]
  - RASH [None]
  - STOMATITIS [None]
  - WHEEZING [None]
